FAERS Safety Report 8846703 (Version 2)
Quarter: 2012Q4

REPORT INFORMATION
  Report Type: 
  Country: JP (occurrence: JP)
  Receive Date: 20121017
  Receipt Date: 20121114
  Transmission Date: 20130627
  Serious: Yes (Death)
  Sender: FDA-Public Use
  Company Number: JP-AMGEN-JPNCT2012066125

PATIENT
  Age: 64 Year
  Sex: Male
  Weight: 53 kg

DRUGS (27)
  1. DARBEPOETIN ALFA [Suspect]
     Indication: NEPHROGENIC ANAEMIA
     Dosage: 60 mug, qd
     Route: 058
     Dates: start: 20101209, end: 20101209
  2. DARBEPOETIN ALFA [Suspect]
     Dosage: 60 mug, qd
     Route: 058
     Dates: start: 20101222, end: 20101222
  3. DARBEPOETIN ALFA [Suspect]
     Dosage: 60 mug, qd
     Route: 058
     Dates: start: 20101227, end: 20101227
  4. DARBEPOETIN ALFA [Suspect]
     Dosage: 60 mug, qd
     Route: 058
     Dates: start: 20110127, end: 20110127
  5. DARBEPOETIN ALFA [Suspect]
     Dosage: 60 mug, qd
     Route: 058
     Dates: start: 20110307, end: 20110307
  6. DARBEPOETIN ALFA [Suspect]
     Dosage: 90 mug, qd
     Route: 058
     Dates: start: 20110418, end: 20110418
  7. DARBEPOETIN ALFA [Suspect]
     Dosage: 90 mug, qd
     Route: 058
     Dates: start: 20110428, end: 20110428
  8. DARBEPOETIN ALFA [Suspect]
     Dosage: 120 mug, q2wk
     Route: 058
     Dates: start: 20110512, end: 20110624
  9. DARBEPOETIN ALFA [Suspect]
     Dosage: 90 mug, qd
     Route: 058
     Dates: start: 20110707, end: 20110707
  10. DARBEPOETIN ALFA [Suspect]
     Dosage: 60 mug, qd
     Route: 058
     Dates: start: 20110721, end: 20110721
  11. DARBEPOETIN ALFA [Suspect]
     Dosage: 90 mug, qd
     Route: 058
     Dates: start: 20110802, end: 20110802
  12. DARBEPOETIN ALFA [Suspect]
     Dosage: 180 mug, qd
     Route: 058
     Dates: start: 20110825, end: 20110825
  13. NU-LOTAN [Concomitant]
     Dosage: Uncertainty
     Route: 048
  14. NORVASC [Concomitant]
     Dosage: Uncertainty
     Route: 048
  15. ZYLORIC [Concomitant]
     Indication: DIABETIC NEPHROPATHY
     Dosage: Uncertainty
     Route: 048
  16. NAPAGELN [Concomitant]
     Dosage: Uncertainty
     Route: 062
  17. ADALAT L [Concomitant]
     Dosage: Uncertainty
     Route: 048
  18. KREMEZIN [Concomitant]
     Indication: DIABETIC NEPHROPATHY
     Dosage: Uncertainty
     Route: 048
  19. LOXONIN [Concomitant]
     Dosage: Single use and uncertain dosage
     Route: 048
  20. RESTAMIN [Concomitant]
     Dosage: Uncertainty
     Route: 061
  21. TAKEPRON [Concomitant]
     Dosage: Uncertainty
     Route: 048
  22. FERROMIA [Concomitant]
     Indication: DIABETIC NEPHROPATHY
     Dosage: Uncertainty
     Route: 048
  23. FUROSEMIDE [Concomitant]
     Indication: DIABETIC NEPHROPATHY
     Dosage: Uncertainty
     Route: 048
  24. CONIEL [Concomitant]
     Dosage: Uncertainty
     Route: 048
  25. ASPARA POTASSIUM [Concomitant]
     Indication: DIABETIC NEPHROPATHY
     Dosage: Uncertainty
     Route: 048
  26. SODIUM BICARBONATE [Concomitant]
     Indication: DIABETIC NEPHROPATHY
     Dosage: Uncertainty
     Route: 048
  27. HANP [Concomitant]
     Indication: DIABETIC NEPHROPATHY
     Dosage: Uncertainty
     Route: 065

REACTIONS (1)
  - Cardiac failure congestive [Fatal]
